FAERS Safety Report 24589324 (Version 1)
Quarter: 2024Q4

REPORT INFORMATION
  Report Type: Spontaneous
  Country: US (occurrence: US)
  Receive Date: 20241107
  Receipt Date: 20241107
  Transmission Date: 20250115
  Serious: No
  Sender: UROGEN PHARMA
  Company Number: US-UROGEN PHARMA LTD.-2024-UGN-000134

PATIENT

DRUGS (10)
  1. JELMYTO [Suspect]
     Active Substance: MITOMYCIN
     Indication: Ureteric cancer
     Dosage: UNK, WEEKLY INSTILLATION
     Route: 065
     Dates: start: 20240702, end: 20240702
  2. JELMYTO [Suspect]
     Active Substance: MITOMYCIN
     Dosage: UNK, WEEKLY INSTILLATION
     Route: 065
     Dates: start: 202407, end: 202407
  3. JELMYTO [Suspect]
     Active Substance: MITOMYCIN
     Dosage: UNK, WEEKLY INSTILLATION
     Route: 065
     Dates: start: 202407, end: 202407
  4. JELMYTO [Suspect]
     Active Substance: MITOMYCIN
     Dosage: UNK, WEEKLY INSTILLATION
     Route: 065
     Dates: start: 202407, end: 202407
  5. JELMYTO [Suspect]
     Active Substance: MITOMYCIN
     Dosage: UNK, WEEKLY INSTILLATION
     Route: 065
     Dates: start: 202407, end: 202407
  6. JELMYTO [Suspect]
     Active Substance: MITOMYCIN
     Dosage: UNK, WEEKLY INSTILLATION
     Route: 065
     Dates: start: 2024, end: 2024
  7. JELMYTO [Suspect]
     Active Substance: MITOMYCIN
     Dosage: UNK, WEEKLY INSTILLATION
     Route: 065
     Dates: start: 2024, end: 2024
  8. JELMYTO [Suspect]
     Active Substance: MITOMYCIN
     Dosage: UNK, WEEKLY INSTILLATION
     Route: 065
     Dates: start: 2024, end: 2024
  9. JELMYTO [Suspect]
     Active Substance: MITOMYCIN
     Dosage: UNK, WEEKLY INSTILLATION
     Route: 065
     Dates: start: 2024, end: 2024
  10. JELMYTO [Suspect]
     Active Substance: MITOMYCIN
     Dosage: UNK, WEEKLY INSTILLATION
     Route: 065
     Dates: start: 2024, end: 2024

REACTIONS (1)
  - Herpes zoster [Unknown]

NARRATIVE: CASE EVENT DATE: 20240912
